FAERS Safety Report 9147011 (Version 2)
Quarter: 2013Q1

REPORT INFORMATION
  Report Type: Spontaneous
  Country: US (occurrence: US)
  Receive Date: 20130307
  Receipt Date: 20130326
  Transmission Date: 20140127
  Serious: Yes (Death)
  Sender: FDA-Public Use
  Company Number: US-GENZYME-CAMP-1002769

PATIENT
  Age: 71 Year
  Sex: Male
  Weight: 74 kg

DRUGS (6)
  1. CAMPATH [Suspect]
     Indication: PRODUCT USED FOR UNKNOWN INDICATION
     Dosage: 3 MG, TIW (MONDAY, WEDNESDAY, FRIDAY)
     Route: 058
     Dates: start: 20121217
  2. CAMPATH [Suspect]
     Dosage: 10 MG, TIW (MONDAY, WEDNESDAY, FRIDAY)
     Route: 058
  3. CAMPATH [Suspect]
     Dosage: 30 MG, TIW (MONDAY, WEDNESDAY, FRIDAY)
     Route: 058
     Dates: end: 20130114
  4. HIZENTRA [Concomitant]
     Indication: HYPOGAMMAGLOBULINAEMIA
     Dosage: UNK, 1X/W
     Route: 065
  5. FAMVIR [Concomitant]
     Indication: PRODUCT USED FOR UNKNOWN INDICATION
     Dosage: 250 MG, BID
     Route: 065
  6. LEVAQUIN [Concomitant]
     Indication: PRODUCT USED FOR UNKNOWN INDICATION
     Dosage: 750 MG, QD
     Route: 065
     Dates: start: 20130116, end: 20130122

REACTIONS (3)
  - Pain [Unknown]
  - Pyrexia [Unknown]
  - Acute myeloid leukaemia [Fatal]
